FAERS Safety Report 7646465-3 (Version None)
Quarter: 2011Q3

REPORT INFORMATION
  Report Type: 
  Country: None (occurrence: None)
  Receive Date: 20110801
  Receipt Date: 20110726
  Transmission Date: 20111222
  Serious: Yes (Other)
  Sender: FDA-Public Use
  Company Number: US-BAYER-2011-065709

PATIENT
  Age: 33 Year
  Sex: Female

DRUGS (2)
  1. MIRENA [Suspect]
     Indication: CONTRACEPTION
     Dosage: UNK
     Route: 015
     Dates: start: 20110414, end: 20110422
  2. MIRENA [Suspect]
     Dosage: UNK
     Dates: start: 20110101

REACTIONS (2)
  - DISCOMFORT [None]
  - DEVICE DISLOCATION [None]
